FAERS Safety Report 18905890 (Version 1)
Quarter: 2021Q1

REPORT INFORMATION
  Report Type: Spontaneous
  Country: US (occurrence: US)
  Receive Date: 20210217
  Receipt Date: 20210217
  Transmission Date: 20210420
  Serious: Yes (Hospitalization, Other)
  Sender: FDA-Public Use
  Company Number: US-OTSUKA-2021_001760

PATIENT
  Age: 6 Year
  Sex: Female

DRUGS (15)
  1. TYLENOL [Concomitant]
     Active Substance: ACETAMINOPHEN
     Indication: PAIN
     Dosage: 3 DF, EVERY 6 HOURS
     Route: 065
     Dates: start: 20190702
  2. PLERIXAFOR [Suspect]
     Active Substance: PLERIXAFOR
     Indication: THALASSAEMIA
     Dosage: 10 ?G/KG, QD
     Route: 065
     Dates: start: 20181109, end: 20181113
  3. DIFLUCAN [Concomitant]
     Active Substance: FLUCONAZOLE
     Indication: PRODUCT USED FOR UNKNOWN INDICATION
     Dosage: 100 MG, QD
     Route: 065
     Dates: start: 20190703
  4. ZOFRAN [Concomitant]
     Active Substance: ONDANSETRON HYDROCHLORIDE
     Indication: NAUSEA
     Dosage: UNK
     Route: 065
     Dates: start: 20190702
  5. MIRALAX [Concomitant]
     Active Substance: POLYETHYLENE GLYCOL 3350
     Indication: CONSTIPATION
     Dosage: 0.5 DF, QD
     Route: 065
  6. BUSULFEX [Suspect]
     Active Substance: BUSULFAN
     Indication: THALASSAEMIA
     Dosage: 69 MG, QD
     Route: 065
     Dates: start: 20190523, end: 20190524
  7. BACTRIM [Concomitant]
     Active Substance: SULFAMETHOXAZOLE\TRIMETHOPRIM
     Indication: PRODUCT USED FOR UNKNOWN INDICATION
     Dosage: 0.5 DF, BIW (40 MG OF TRIMETHOPRIM) (ON SATURDAY AND SUNDAY)
     Route: 065
     Dates: start: 20190706
  8. BUSULFEX [Suspect]
     Active Substance: BUSULFAN
     Indication: HAEMATOPOIETIC STEM CELL MOBILISATION
  9. AYR SALINE [Concomitant]
     Active Substance: SODIUM CHLORIDE
     Indication: PRODUCT USED FOR UNKNOWN INDICATION
     Dosage: 1 DF, BID
     Route: 045
     Dates: start: 20190702
  10. PLERIXAFOR [Suspect]
     Active Substance: PLERIXAFOR
     Indication: HAEMATOPOIETIC STEM CELL MOBILISATION
  11. TYLENOL [Concomitant]
     Active Substance: ACETAMINOPHEN
     Indication: PYREXIA
  12. AQUAPHOR [Concomitant]
     Active Substance: PETROLATUM
     Indication: PRODUCT USED FOR UNKNOWN INDICATION
     Dosage: 1 DF, BID
     Route: 065
     Dates: start: 20190702
  13. BENADRYL [Concomitant]
     Active Substance: DIPHENHYDRAMINE HYDROCHLORIDE
     Indication: PRURITUS
     Dosage: 0.5 DF, Q4HR
     Route: 065
     Dates: start: 20190702
  14. BUSULFEX [Suspect]
     Active Substance: BUSULFAN
     Indication: BONE MARROW CONDITIONING REGIMEN
     Dosage: 62 MG, QD
     Route: 065
     Dates: start: 20190521, end: 20190522
  15. BENADRYL [Concomitant]
     Active Substance: DIPHENHYDRAMINE HYDROCHLORIDE
     Indication: NAUSEA

REACTIONS (6)
  - Anaemia [Recovering/Resolving]
  - Epistaxis [Recovered/Resolved]
  - Haematocrit decreased [Unknown]
  - White blood cell count decreased [Unknown]
  - Thrombocytopenia [Recovering/Resolving]
  - Blood pressure decreased [Recovered/Resolved]

NARRATIVE: CASE EVENT DATE: 20190801
